FAERS Safety Report 23554775 (Version 1)
Quarter: 2024Q1

REPORT INFORMATION
  Report Type: Spontaneous
  Country: US (occurrence: US)
  Receive Date: 20240222
  Receipt Date: 20240222
  Transmission Date: 20240410
  Serious: No
  Sender: FDA-Public Use
  Company Number: US-GALDERMA-US2023019812

PATIENT

DRUGS (4)
  1. PROACTIV MD ADAPALENE ACNE TREATMENT [Suspect]
     Active Substance: ADAPALENE
     Indication: Miliaria
     Dosage: 1 DOSAGE FORM, QD
     Route: 061
     Dates: start: 20231213, end: 20231214
  2. Proactiv MD Ultra Gentle Cleanser [Concomitant]
     Indication: Miliaria
     Dosage: 1 DOSAGE FORM, BID
     Route: 061
     Dates: start: 20231213, end: 20231214
  3. Proactiv MD Ultra Hydrating Moisturizer [Concomitant]
     Indication: Miliaria
     Dosage: 1 DOSAGE FORM, BID
     Route: 061
     Dates: start: 20231213, end: 20231214
  4. PROACTIV ACNE BODY WASH [Concomitant]
     Active Substance: SALICYLIC ACID
     Indication: Miliaria
     Dosage: 1 DOSAGE FORM, BID
     Route: 061
     Dates: start: 20231213, end: 20231214

REACTIONS (6)
  - Skin burning sensation [Not Recovered/Not Resolved]
  - Pain of skin [Not Recovered/Not Resolved]
  - Skin fissures [Not Recovered/Not Resolved]
  - Dry skin [Not Recovered/Not Resolved]
  - Acne cystic [Not Recovered/Not Resolved]
  - Product use in unapproved indication [Recovered/Resolved]

NARRATIVE: CASE EVENT DATE: 20231213
